FAERS Safety Report 12380402 (Version 6)
Quarter: 2023Q1

REPORT INFORMATION
  Report Type: Spontaneous
  Country: US (occurrence: US)
  Receive Date: 20160518
  Receipt Date: 20230310
  Transmission Date: 20230417
  Serious: Yes (Other)
  Sender: FDA-Public Use
  Company Number: US-PFIZER INC-2016228357

PATIENT
  Age: 58 Year
  Sex: Female
  Weight: 98.413 kg

DRUGS (3)
  1. AROMASIN [Suspect]
     Active Substance: EXEMESTANE
     Indication: Breast cancer
     Dosage: 25 MG, 1X/DAY
     Route: 048
     Dates: start: 201304
  2. AROMASIN [Suspect]
     Active Substance: EXEMESTANE
     Indication: Blood oestrogen increased
     Dosage: 12.5 MG, 1X/DAY
     Route: 048
     Dates: start: 201501, end: 202001
  3. AROMASIN [Suspect]
     Active Substance: EXEMESTANE
     Indication: Prophylaxis

REACTIONS (2)
  - Arthralgia [Recovered/Resolved]
  - Myalgia [Recovered/Resolved]

NARRATIVE: CASE EVENT DATE: 20130401
